FAERS Safety Report 8611958-9 (Version None)
Quarter: 2012Q3

REPORT INFORMATION
  Report Type: 
  Country: None (occurrence: None)
  Receive Date: 20120822
  Receipt Date: 20120820
  Transmission Date: 20120928
  Serious: Yes (Death, Life-Threatening, Hospitalization)
  Sender: FDA-Public Use
  Company Number: JP-ABBOTT-03P-087-0233012-00

PATIENT
  Sex: Male

DRUGS (16)
  1. KALETRA [Suspect]
     Indication: HIV INFECTION
     Route: 048
     Dates: start: 20020903, end: 20040804
  2. KALETRA [Suspect]
     Indication: HIV INFECTION
     Route: 048
     Dates: start: 20061026, end: 20110807
  3. ABACAVIR [Suspect]
     Indication: HIV INFECTION
     Route: 048
     Dates: start: 20040831, end: 20060921
  4. GLYCYRON [Concomitant]
     Indication: HEPATIC FUNCTION ABNORMAL
     Route: 048
     Dates: start: 20020401, end: 20040804
  5. SAQUINAVIR [Concomitant]
     Indication: HIV INFECTION
     Route: 048
     Dates: start: 20061026
  6. KALETRA [Suspect]
     Route: 048
     Dates: start: 20040831, end: 20060921
  7. ALLOPURINOL [Concomitant]
     Indication: HYPERURICAEMIA
     Route: 048
     Dates: start: 20020401, end: 20040804
  8. BIFIDOBACTERIUM [Concomitant]
     Indication: DIARRHOEA
     Route: 048
     Dates: start: 20040401, end: 20040804
  9. DIDANOSINE [Suspect]
     Indication: HIV INFECTION
     Route: 048
     Dates: start: 20020903, end: 20040804
  10. DIDANOSINE [Suspect]
     Route: 048
     Dates: start: 20040831, end: 20060921
  11. DIDANOSINE [Suspect]
     Route: 048
     Dates: start: 20061026
  12. TENOFOVIR DISOPROXIL FUMARATE [Suspect]
     Indication: HIV INFECTION
     Route: 048
     Dates: start: 20040831, end: 20060921
  13. ISENTRESS [Suspect]
     Indication: HIV INFECTION
     Dosage: 800MG DAILY
     Route: 048
     Dates: start: 20110807
  14. LOPERAMIDE HCL [Concomitant]
     Indication: DIARRHOEA
     Route: 048
     Dates: start: 20040401, end: 20040804
  15. STAVUDINE [Suspect]
     Indication: HIV INFECTION
     Route: 048
     Dates: start: 20020401, end: 20040804
  16. ALLOPURINOL [Concomitant]
     Route: 048
     Dates: start: 20040831

REACTIONS (5)
  - LIVER DISORDER [None]
  - HYPOPHOSPHATAEMIA [None]
  - LACTIC ACIDOSIS [None]
  - DIARRHOEA [None]
  - CARDIAC FAILURE [None]
